FAERS Safety Report 6599170-9 (Version None)
Quarter: 2010Q1

REPORT INFORMATION
  Report Type: 
  Country: None (occurrence: None)
  Receive Date: 20100224
  Receipt Date: 20100217
  Transmission Date: 20100710
  Serious: Yes (Life-Threatening)
  Sender: FDA-Public Use
  Company Number: US-SANOFI-AVENTIS-2010SA009501

PATIENT
  Sex: Male

DRUGS (1)
  1. DDAVP [Suspect]
     Route: 045

REACTIONS (1)
  - UNEVALUABLE EVENT [None]
